FAERS Safety Report 21326466 (Version 4)
Quarter: 2022Q4

REPORT INFORMATION
  Report Type: Report from Study
  Country: JP (occurrence: None)
  Receive Date: 20220913
  Receipt Date: 20221014
  Transmission Date: 20230112
  Serious: Yes (Hospitalization)
  Sender: FDA-Public Use
  Company Number: JP-ROCHE-3176524

PATIENT
  Age: 73 Year
  Sex: Male
  Weight: 62 kg

DRUGS (12)
  1. TRASTUZUMAB [Suspect]
     Active Substance: TRASTUZUMAB
     Indication: Bile duct cancer
     Dosage: DAY 1 OF EACH CYCLE
     Route: 042
  2. TRASTUZUMAB [Suspect]
     Active Substance: TRASTUZUMAB
     Dosage: PATIENT RECEIVED SUBSEQUENT DOSES AT 6 MG/KG; RECEIVED A TOTAL OF 6 DOSES AND COMPLETED C6D1.
     Route: 042
     Dates: start: 20220426, end: 20220426
  3. TRASTUZUMAB [Suspect]
     Active Substance: TRASTUZUMAB
     Route: 042
  4. TRASTUZUMAB [Suspect]
     Active Substance: TRASTUZUMAB
     Route: 042
  5. TUCATINIB [Suspect]
     Active Substance: TUCATINIB
     Indication: Bile duct cancer
     Dosage: DAYS 1-21
     Route: 048
     Dates: start: 20220426
  6. TUCATINIB [Suspect]
     Active Substance: TUCATINIB
     Dosage: DAYS 1-21;
     Route: 048
     Dates: start: 20220524
  7. JANUVIA [Concomitant]
     Active Substance: SITAGLIPTIN PHOSPHATE
     Dates: start: 20211126
  8. METGLUCO [Concomitant]
     Active Substance: METFORMIN HYDROCHLORIDE
     Dates: start: 20211126
  9. BARACLUDE [Concomitant]
     Active Substance: ENTECAVIR
     Dates: start: 20220329
  10. BISOPROLOL FUMARATE [Concomitant]
     Active Substance: BISOPROLOL FUMARATE
     Dates: start: 20220814
  11. REBAMIPIDE [Concomitant]
     Active Substance: REBAMIPIDE
     Dates: start: 20220809
  12. ESOMEPRAZOLE [Concomitant]
     Active Substance: ESOMEPRAZOLE
     Dates: start: 20220809

REACTIONS (1)
  - Interstitial lung disease [Recovering/Resolving]

NARRATIVE: CASE EVENT DATE: 20220901
